FAERS Safety Report 24457205 (Version 4)
Quarter: 2024Q4

REPORT INFORMATION
  Report Type: Spontaneous
  Country: CA (occurrence: CA)
  Receive Date: 20241018
  Receipt Date: 20241211
  Transmission Date: 20250115
  Serious: Yes (Other)
  Sender: CELLTRION
  Company Number: CA-PFIZER INC-202400047781

PATIENT

DRUGS (10)
  1. INFLECTRA [Suspect]
     Active Substance: INFLIXIMAB-DYYB
     Indication: Crohn^s disease
     Dosage: 10 MG/KG, WEEK 0, 2, 6 WEEKS THEN EVERY 8 WEEKS (DOSE OF 10 MG/KG INSTEAD OF 5 MG/KG AS PRESCRIBED)
     Route: 042
     Dates: start: 20240220, end: 20240605
  2. INFLECTRA [Suspect]
     Active Substance: INFLIXIMAB-DYYB
     Dosage: 10 MG/KG, WEEK 0, 2, 6 WEEKS THEN EVERY 8 WEEKS
     Route: 042
     Dates: start: 20240308
  3. INFLECTRA [Suspect]
     Active Substance: INFLIXIMAB-DYYB
     Dosage: 10 MG/KG, W 0, 2, 6 WEEKS THEN EVERY 8 WEEKS
     Route: 042
     Dates: start: 20240411
  4. INFLECTRA [Suspect]
     Active Substance: INFLIXIMAB-DYYB
     Dosage: 10 MG/KG, WEEKS 0,2,6 THEN Q 4 WEEKS
     Route: 042
     Dates: start: 20240628
  5. INFLECTRA [Suspect]
     Active Substance: INFLIXIMAB-DYYB
     Dosage: 10 MG/KG, WEEKS 0,2,6 THEN Q 4 WEEKS
     Route: 042
     Dates: start: 20240911
  6. INFLECTRA [Suspect]
     Active Substance: INFLIXIMAB-DYYB
     Dosage: 640 MG, 11 WEEKS AND 1 DAY (PRESCRIBED 10 MG/KG, WEEKS 0,2,6 THEN Q 4 WEEKS)
     Route: 042
     Dates: start: 20241128
  7. CALCIUM [Concomitant]
     Active Substance: CALCIUM
     Dosage: UNK
  8. IRON [Concomitant]
     Active Substance: IRON
     Dosage: UNK
  9. PREDNISONE [Concomitant]
     Active Substance: PREDNISONE
     Dosage: UNK
  10. CHOLECALCIFEROL [Concomitant]
     Active Substance: CHOLECALCIFEROL
     Dosage: UNK

REACTIONS (12)
  - Abdominal abscess [Not Recovered/Not Resolved]
  - Intestinal operation [Unknown]
  - Heart rate increased [Unknown]
  - Influenza [Recovered/Resolved]
  - Fistula [Not Recovered/Not Resolved]
  - Nausea [Not Recovered/Not Resolved]
  - Discoloured vomit [Not Recovered/Not Resolved]
  - Malaise [Not Recovered/Not Resolved]
  - Drug level increased [Not Recovered/Not Resolved]
  - Colostomy bag user [Unknown]
  - Off label use [Unknown]
  - Off label use [Unknown]

NARRATIVE: CASE EVENT DATE: 20240101
